FAERS Safety Report 7590837 (Version 3)
Quarter: 2012Q4

REPORT INFORMATION
  Report Type: 
  Country: IT (occurrence: IT)
  Receive Date: 20100917
  Receipt Date: 20121220
  Transmission Date: 20130627
  Serious: Yes (Other)
  Sender: FDA-Public Use
  Company Number: IT-ROCHE-726574

PATIENT
  Age: 60 Year
  Sex: Female

DRUGS (7)
  1. HERCEPTIN [Suspect]
     Indication: BREAST CANCER
     Route: 042
  2. HERCEPTIN [Suspect]
     Dosage: TEMPORARILY DISCONTINUED
     Route: 042
  3. PACLITAXEL [Concomitant]
     Indication: BREAST CANCER
     Route: 042
     Dates: start: 20100401, end: 20100707
  4. CITALOPRAM [Concomitant]
     Route: 048
  5. ATORVASTATIN [Concomitant]
     Dosage: ATORVASTATIN/TORVAST
     Route: 048
  6. LETROZOLE [Concomitant]
     Dosage: DRUG NAME : LETROZOLE/FEMARA
     Route: 048
  7. ANASTROZOLE [Concomitant]
     Indication: BREAST CANCER

REACTIONS (2)
  - Choreoathetosis [Recovering/Resolving]
  - Dystonia [Recovering/Resolving]
